FAERS Safety Report 5024670-2 (Version None)
Quarter: 2006Q2

REPORT INFORMATION
  Report Type: 
  Country: None (occurrence: None)
  Receive Date: 20060613
  Receipt Date: 20060602
  Transmission Date: 20061013
  Serious: Yes (Hospitalization)
  Sender: FDA-Public Use
  Company Number: FR-ROCHE-450684

PATIENT
  Age: 14 Year
  Sex: Female

DRUGS (2)
  1. ROCEPHIN [Suspect]
     Indication: SALPINGITIS
     Route: 042
     Dates: start: 20060415, end: 20060418
  2. ROCEPHIN [Suspect]
     Route: 042
     Dates: start: 20060419, end: 20060420

REACTIONS (3)
  - ACUTE GENERALISED EXANTHEMATOUS PUSTULOSIS [None]
  - PURPURA [None]
  - PYREXIA [None]
